FAERS Safety Report 24269105 (Version 4)
Quarter: 2024Q4

REPORT INFORMATION
  Report Type: Spontaneous
  Country: BR (occurrence: BR)
  Receive Date: 20240830
  Receipt Date: 20241002
  Transmission Date: 20250115
  Serious: No
  Sender: ELI LILLY AND CO
  Company Number: BR-ELI_LILLY_AND_COMPANY-BR202408014845

PATIENT
  Age: 63 Year
  Sex: Male

DRUGS (4)
  1. CIALIS [Suspect]
     Active Substance: TADALAFIL
     Indication: Product used for unknown indication
     Dosage: 5 MG, UNKNOWN
     Route: 065
  2. CIALIS [Suspect]
     Active Substance: TADALAFIL
     Dosage: 5 MG, UNKNOWN
     Route: 065
  3. CIALIS [Suspect]
     Active Substance: TADALAFIL
     Indication: Product used for unknown indication
     Dosage: UNK, UNKNOWN
     Route: 065
  4. SEROQUEL [Concomitant]
     Active Substance: QUETIAPINE FUMARATE
     Indication: Sleep disorder
     Dosage: UNK, UNKNOWN
     Route: 065

REACTIONS (6)
  - Suspected counterfeit product [Unknown]
  - Erythema [Unknown]
  - Drug ineffective [Unknown]
  - Vision blurred [Unknown]
  - Headache [Unknown]
  - Flushing [Unknown]
